FAERS Safety Report 12305038 (Version 1)
Quarter: 2016Q2

REPORT INFORMATION
  Report Type: Report from Study
  Country: JP (occurrence: JP)
  Receive Date: 20160426
  Receipt Date: 20160426
  Transmission Date: 20160815
  Serious: Yes (Other)
  Sender: FDA-Public Use
  Company Number: JP-009507513-1604JPN014706

PATIENT

DRUGS (3)
  1. RIBAVIRIN. [Suspect]
     Active Substance: RIBAVIRIN
     Indication: CHRONIC HEPATITIS C
     Dosage: 600-1000 MG, QD, DAILY DOSE UNKNOWN
     Route: 048
  2. TELAPREVIR [Suspect]
     Active Substance: TELAPREVIR
     Indication: CHRONIC HEPATITIS C
     Dosage: 2250MG/DAY STANDARD DOSE OR DOSE REDUCED TO 1500MG/ DAY, FORMULATION- POR, DAILY DOSE UNKNOWN
     Route: 048
  3. PEGINTERFERON ALFA-2B [Suspect]
     Active Substance: PEGINTERFERON ALFA-2B
     Indication: CHRONIC HEPATITIS C
     Dosage: 1.3-1.7 MICROGRAM/KG, QW, DAILY DOSE UNKNOWN
     Route: 058

REACTIONS (1)
  - Renal failure [Unknown]
